FAERS Safety Report 7233944-6 (Version None)
Quarter: 2011Q1

REPORT INFORMATION
  Report Type: 
  Country: None (occurrence: None)
  Receive Date: 20110113
  Receipt Date: 20110113
  Transmission Date: 20110831
  Serious: Yes (Hospitalization)
  Sender: FDA-Public Use
  Company Number: None

PATIENT
  Sex: Female
  Weight: 78.27 kg

DRUGS (2)
  1. CISPLATIN [Suspect]
     Dosage: 140 MG
     Dates: end: 20101221
  2. GEMCITABINE HYDROCHLORIDE [Suspect]
     Dosage: 4490 MG
     Dates: end: 20101228

REACTIONS (5)
  - BLOOD URINE PRESENT [None]
  - BLOOD PRESSURE DECREASED [None]
  - BODY TEMPERATURE INCREASED [None]
  - LUNG INFILTRATION [None]
  - PROTEIN URINE [None]
